FAERS Safety Report 7444832-4 (Version None)
Quarter: 2011Q2

REPORT INFORMATION
  Report Type: 
  Country: None (occurrence: None)
  Receive Date: 20110426
  Receipt Date: 20110426
  Transmission Date: 20111010
  Serious: Yes (Other)
  Sender: FDA-Public Use
  Company Number: None

PATIENT
  Age: 35 Year
  Sex: Female
  Weight: 61.6892 kg

DRUGS (3)
  1. SPECTRACEF [Suspect]
     Indication: PHARYNGITIS STREPTOCOCCAL
     Dosage: 400 MY 1 TABLET TWIDAILY PO
     Route: 048
     Dates: start: 20110423, end: 20110424
  2. IBUPROFEN [Concomitant]
  3. ACETAMINOPHEN [Concomitant]

REACTIONS (4)
  - OROPHARYNGEAL PAIN [None]
  - LYMPHADENOPATHY [None]
  - LYMPH NODE PAIN [None]
  - PYREXIA [None]
